FAERS Safety Report 9760525 (Version 1)
Quarter: 2013Q4

REPORT INFORMATION
  Report Type: Spontaneous
  Country: US (occurrence: US)
  Receive Date: 20131216
  Receipt Date: 20131216
  Transmission Date: 20140711
  Serious: No
  Sender: FDA-Public Use
  Company Number: US-BIOGENIDEC-2013BI100261

PATIENT
  Age: 68 Year
  Sex: Male

DRUGS (12)
  1. TECFIDERA [Suspect]
     Indication: MULTIPLE SCLEROSIS
     Route: 048
     Dates: start: 20130926, end: 20131003
  2. TECFIDERA [Suspect]
     Indication: MULTIPLE SCLEROSIS
     Route: 048
     Dates: start: 20131003
  3. AMLODIPINE [Concomitant]
  4. AMPYRA [Concomitant]
  5. ASA [Concomitant]
  6. ATORVASTATIN [Concomitant]
  7. HCTZ [Concomitant]
  8. METOPROLOL [Concomitant]
  9. MIRAPEX [Concomitant]
  10. OXYBUTINEN [Concomitant]
  11. PROVIGIL [Concomitant]
  12. TYLENOL [Concomitant]

REACTIONS (2)
  - Myalgia [Recovered/Resolved]
  - Abdominal discomfort [Recovered/Resolved]
